FAERS Safety Report 23623788 (Version 1)
Quarter: 2024Q1

REPORT INFORMATION
  Report Type: Spontaneous
  Country: US (occurrence: US)
  Receive Date: 20240312
  Receipt Date: 20240312
  Transmission Date: 20240410
  Serious: Yes (Other)
  Sender: FDA-Public Use
  Company Number: US-KARYOPHARM-2024KPT000737

PATIENT

DRUGS (7)
  1. XPOVIO [Suspect]
     Active Substance: SELINEXOR
     Indication: Plasma cell myeloma
     Dosage: 60 MG, D1, 8, 15, Q28D
     Route: 048
     Dates: start: 20240219, end: 20240219
  2. TRAMADOL [Concomitant]
     Active Substance: TRAMADOL\TRAMADOL HYDROCHLORIDE
  3. VALSARTAN [Concomitant]
     Active Substance: VALSARTAN
  4. IPRATROPIUM BROMIDE [Concomitant]
     Active Substance: IPRATROPIUM BROMIDE\IPRATROPIUM BROMIDE ANHYDROUS
  5. DEXAMETHASONE [Concomitant]
     Active Substance: DEXAMETHASONE
  6. ZYPREXA [Concomitant]
     Active Substance: OLANZAPINE
  7. ZOFRAN [Concomitant]
     Active Substance: ONDANSETRON HYDROCHLORIDE

REACTIONS (2)
  - Thrombosis [Unknown]
  - Shoulder fracture [Unknown]

NARRATIVE: CASE EVENT DATE: 20240201
